FAERS Safety Report 4518102-8 (Version None)
Quarter: 2004Q4

REPORT INFORMATION
  Report Type: 
  Country: None (occurrence: None)
  Receive Date: 20041130
  Receipt Date: 20041119
  Transmission Date: 20050328
  Serious: Yes (Other)
  Sender: FDA-Public Use
  Company Number: GBWYE229324NOV04

PATIENT
  Age: 2 Year
  Sex: Female

DRUGS (1)
  1. CHILDREN'S ADVIL [Suspect]
     Dosage: 2 X 5 ML
     Route: 048
     Dates: start: 20041103, end: 20041103

REACTIONS (2)
  - LOCAL SWELLING [None]
  - OEDEMA MOUTH [None]
